FAERS Safety Report 8834771 (Version 1)
Quarter: 2012Q4

REPORT INFORMATION
  Report Type: 
  Country: US (occurrence: US)
  Receive Date: 20121010
  Receipt Date: 20121010
  Transmission Date: 20130627
  Serious: Yes (Other)
  Sender: FDA-Public Use
  Company Number: US-ABBOTT-12P-163-0990562-00

PATIENT
  Age: 80 None
  Sex: Male
  Weight: 76.73 kg

DRUGS (3)
  1. LUPRON DEPOT [Suspect]
     Indication: PROSTATE CANCER
     Route: 030
     Dates: start: 20120227
  2. LUPRON DEPOT [Suspect]
     Dosage: In Switzerland
     Route: 058
     Dates: start: 201206
  3. LUPRON DEPOT [Suspect]
     Route: 030
     Dates: start: 201209

REACTIONS (5)
  - Metastases to bone [Not Recovered/Not Resolved]
  - Prostatic specific antigen increased [Not Recovered/Not Resolved]
  - Fatigue [Not Recovered/Not Resolved]
  - Nausea [Not Recovered/Not Resolved]
  - Decreased appetite [Not Recovered/Not Resolved]
